FAERS Safety Report 6720263-7 (Version None)
Quarter: 2010Q2

REPORT INFORMATION
  Report Type: 
  Country: None (occurrence: None)
  Receive Date: 20100507
  Receipt Date: 20100421
  Transmission Date: 20101027
  Serious: Yes (Hospitalization, Other)
  Sender: FDA-Public Use
  Company Number: 20108658

PATIENT
  Sex: Male

DRUGS (4)
  1. BACLOFEN [Suspect]
     Indication: MUSCLE SPASTICITY
     Dosage: INTRATHECAL - SEE B5
     Route: 037
  2. TANATRIL [Concomitant]
  3. CALBLOCK [Concomitant]
  4. KENEI G ENEMA [Concomitant]

REACTIONS (5)
  - CONDITION AGGRAVATED [None]
  - DECUBITUS ULCER [None]
  - MUSCLE SPASMS [None]
  - MUSCULOSKELETAL STIFFNESS [None]
  - PAIN IN EXTREMITY [None]
